FAERS Safety Report 18433940 (Version 2)
Quarter: 2020Q4

REPORT INFORMATION
  Report Type: Report from Study
  Country: None (occurrence: US)
  Receive Date: 20201028
  Receipt Date: 20201205
  Transmission Date: 20210114
  Serious: No
  Sender: FDA-Public Use
  Company Number: US-ABBVIE-20K-163-3621208-00

PATIENT
  Sex: Female

DRUGS (1)
  1. HUMIRA [Suspect]
     Active Substance: ADALIMUMAB
     Indication: RHEUMATOID ARTHRITIS
     Route: 058

REACTIONS (6)
  - Foot deformity [Unknown]
  - Peripheral swelling [Unknown]
  - Hand deformity [Unknown]
  - Joint swelling [Unknown]
  - Ankle deformity [Unknown]
  - Weight decreased [Unknown]
